FAERS Safety Report 24731579 (Version 1)
Quarter: 2024Q4

REPORT INFORMATION
  Report Type: Spontaneous
  Country: BR (occurrence: BR)
  Receive Date: 20241213
  Receipt Date: 20241213
  Transmission Date: 20250114
  Serious: Yes (Hospitalization)
  Sender: BRISTOL-MYERS SQUIBB COMPANY
  Company Number: BR-BRISTOL-MYERS SQUIBB COMPANY-2024-191967

PATIENT
  Age: 74 Year
  Sex: Female

DRUGS (3)
  1. REVLIMID [Suspect]
     Active Substance: LENALIDOMIDE
     Indication: Plasma cell myeloma refractory
     Dosage: DOSE : 25MG;     FREQ : 21 DAYS ON AND 7 DAYS OFF
     Route: 048
     Dates: start: 202409, end: 20241016
  2. DARATUMUMAB [Concomitant]
     Active Substance: DARATUMUMAB
     Indication: Product used for unknown indication
     Dosage: 100 MG PER 5 ML
  3. DARATUMUMAB [Concomitant]
     Active Substance: DARATUMUMAB
     Dosage: 20 MG PER 20 ML

REACTIONS (2)
  - Asthenia [Unknown]
  - Eating disorder [Unknown]
